FAERS Safety Report 7738808-7 (Version None)
Quarter: 2011Q3

REPORT INFORMATION
  Report Type: 
  Country: None (occurrence: None)
  Receive Date: 20110909
  Receipt Date: 20110902
  Transmission Date: 20111222
  Serious: Yes (Hospitalization, Other)
  Sender: FDA-Public Use
  Company Number: US-BRISTOL-MYERS SQUIBB COMPANY-13903224

PATIENT
  Age: 57 Year
  Sex: Male
  Weight: 85 kg

DRUGS (3)
  1. CISPLATIN [Suspect]
     Indication: HEAD AND NECK CANCER
     Dates: start: 20070820, end: 20070820
  2. LEXAPRO [Concomitant]
  3. TYLENOL-500 [Concomitant]

REACTIONS (8)
  - PNEUMONITIS [None]
  - DYSPHAGIA [None]
  - ORAL PAIN [None]
  - DEHYDRATION [None]
  - LYMPHOCYTE COUNT DECREASED [None]
  - STOMATITIS [None]
  - PYREXIA [None]
  - PNEUMONIA [None]
